FAERS Safety Report 7317569 (Version 6)
Quarter: 2014Q1

REPORT INFORMATION
  Report Type: Spontaneous
  Country: US (occurrence: US)
  Receive Date: 20100312
  Receipt Date: 20140206
  Transmission Date: 20141002
  Serious: Yes (Hospitalization, Other)
  Sender: FDA-Public Use
  Company Number: US-BAYER-201016066NA

PATIENT
  Age: 23 Year
  Sex: Female
  Weight: 63.49 kg

DRUGS (8)
  1. YAZ [Suspect]
     Indication: PRODUCT USED FOR UNKNOWN INDICATION
     Route: 048
  2. YASMIN [Suspect]
     Indication: PRODUCT USED FOR UNKNOWN INDICATION
     Dosage: UNK
     Route: 048
     Dates: start: 2002, end: 2007
  3. YASMIN [Suspect]
     Indication: PRODUCT USED FOR UNKNOWN INDICATION
     Route: 048
     Dates: start: 2002, end: 2007
  4. XANAX [Concomitant]
     Route: 065
  5. GLUCOPHAGE [Concomitant]
     Route: 065
  6. ZOLOFT [Concomitant]
     Indication: ANXIETY
     Dosage: UNK UNK, UNK
     Route: 065
     Dates: start: 200203
  7. SYNTHROID [Concomitant]
     Dosage: 50 ?G, UNK
     Route: 048
     Dates: start: 20050812, end: 20100713
  8. PAXIL [Concomitant]
     Indication: ANXIETY
     Dosage: UNK
     Dates: start: 20020916

REACTIONS (4)
  - Cholecystectomy [Unknown]
  - Pancreatitis [Unknown]
  - Depression [Unknown]
  - Cholecystitis acute [None]
